FAERS Safety Report 21041825 (Version 1)
Quarter: 2022Q3

REPORT INFORMATION
  Report Type: Spontaneous
  Country: CN (occurrence: CN)
  Receive Date: 20220705
  Receipt Date: 20220705
  Transmission Date: 20221027
  Serious: Yes (Death, Hospitalization, Other)
  Sender: FDA-Public Use
  Company Number: CN-BoehringerIngelheim-2022-BI-179756

PATIENT
  Age: 30 Year
  Sex: Female

DRUGS (6)
  1. AFATINIB [Suspect]
     Active Substance: AFATINIB
     Indication: Lung adenocarcinoma
     Route: 048
  2. AFATINIB [Suspect]
     Active Substance: AFATINIB
     Indication: EGFR gene mutation
  3. PEMETREXED and Carboplatin [Concomitant]
     Indication: Lung adenocarcinoma
  4. PEMETREXED and Carboplatin [Concomitant]
     Indication: EGFR gene mutation
  5. CATEQUENTINIB [Concomitant]
     Active Substance: CATEQUENTINIB
     Indication: Lung adenocarcinoma
  6. CATEQUENTINIB [Concomitant]
     Active Substance: CATEQUENTINIB
     Indication: EGFR gene mutation

REACTIONS (2)
  - Malignant neoplasm progression [Fatal]
  - Therapy partial responder [Unknown]
